FAERS Safety Report 8602112-5 (Version None)
Quarter: 2012Q3

REPORT INFORMATION
  Report Type: 
  Country: None (occurrence: None)
  Receive Date: 20120817
  Receipt Date: 20120813
  Transmission Date: 20120928
  Serious: Yes (Other)
  Sender: FDA-Public Use
  Company Number: US-PFIZER INC-2012198206

PATIENT
  Age: 49 Year
  Sex: Male
  Weight: 90.703 kg

DRUGS (6)
  1. NEURONTIN [Suspect]
     Indication: PAIN IN EXTREMITY
     Dosage: UNK
  2. NEURONTIN [Suspect]
     Dosage: 1200 MG, UNK
  3. LYRICA [Suspect]
     Indication: PAIN IN EXTREMITY
     Dosage: 300 MG, 2X/DAY
     Route: 048
  4. METHADONE [Concomitant]
     Dosage: UNK
  5. PERCOCET [Concomitant]
     Indication: BREAKTHROUGH PAIN
     Dosage: UNK
  6. DILAUDID [Concomitant]
     Indication: BACK DISORDER
     Dosage: UNK
     Route: 037

REACTIONS (4)
  - STAPHYLOCOCCAL INFECTION [None]
  - BACK DISORDER [None]
  - DRUG INEFFECTIVE [None]
  - WITHDRAWAL SYNDROME [None]
